FAERS Safety Report 5594185-1 (Version None)
Quarter: 2008Q1

REPORT INFORMATION
  Report Type: 
  Country: None (occurrence: None)
  Receive Date: 20080115
  Receipt Date: 20080108
  Transmission Date: 20080703
  Serious: Yes (Other)
  Sender: FDA-Public Use
  Company Number: CHPA2008US00590

PATIENT
  Age: 79 Year
  Sex: Male

DRUGS (1)
  1. BENEFIBER SUGAR FREE (NCH)(WHEAT DEXTRIN) CHEWABLE TABLET [Suspect]
     Indication: DYSPEPSIA
     Dosage: 3330 MG, TID, ORAL
     Route: 048

REACTIONS (1)
  - BLOOD PRESSURE INCREASED [None]
